FAERS Safety Report 5608796-8 (Version None)
Quarter: 2008Q1

REPORT INFORMATION
  Report Type: 
  Country: None (occurrence: None)
  Receive Date: 20080131
  Receipt Date: 20080130
  Transmission Date: 20080703
  Serious: Yes (Hospitalization, Other)
  Sender: FDA-Public Use
  Company Number: US-BRISTOL-MYERS SQUIBB COMPANY-13997564

PATIENT
  Age: 63 Year
  Sex: Male
  Weight: 90 kg

DRUGS (7)
  1. TAXOL [Suspect]
     Indication: ADENOCARCINOMA
     Dosage: RESTARTED ON 28-NOV-07 AT 300MG  PRESCRIBED DOSE AT THE TIME OF THE EVENT-200MG
     Route: 042
     Dates: start: 20071025
  2. CARBOPLATIN [Suspect]
     Indication: ADENOCARCINOMA
     Dosage: RESTARTED ON 28-NOV-07 AT 450MG  PRESCRIBED DOSE AT THE TIME OF THE EVENT-6
     Route: 042
     Dates: start: 20071025
  3. ETOPOSIDE [Suspect]
     Indication: ADENOCARCINOMA
     Dosage: RESTARTED ON 28-NOV-07 AT 50MG QD  PRESCRIBED DOSE AT THE TIME OF THE EVENT- 50MG/100MG
     Route: 048
     Dates: start: 20071025
  4. ZESTRIL [Concomitant]
     Indication: HYPERTENSION
     Dates: end: 20071101
  5. GLUCOPHAGE [Concomitant]
     Indication: DIABETES MELLITUS
  6. NEUPOGEN [Concomitant]
     Indication: NEUTROPENIA
     Dates: start: 20071102
  7. DARVOCET [Concomitant]
     Indication: PAIN
     Dosage: DF= UNIT NOT SPECIFIED
     Dates: start: 20070901

REACTIONS (6)
  - FAILURE TO THRIVE [None]
  - HYPERTENSION [None]
  - HYPONATRAEMIA [None]
  - NEUTROPENIA [None]
  - SEPSIS [None]
  - THROMBOCYTOPENIA [None]
